FAERS Safety Report 5037719-8 (Version None)
Quarter: 2006Q2

REPORT INFORMATION
  Report Type: 
  Country: None (occurrence: None)
  Receive Date: 20060622
  Receipt Date: 20060609
  Transmission Date: 20061013
  Serious: Yes (Other)
  Sender: FDA-Public Use
  Company Number: 2006073758

PATIENT
  Age: 48 Year
  Sex: Female

DRUGS (1)
  1. VFEND [Suspect]
     Dosage: INTRAVENOUS
     Route: 042

REACTIONS (1)
  - CONVULSION [None]
